FAERS Safety Report 15455554 (Version 1)
Quarter: 2018Q4

REPORT INFORMATION
  Report Type: Report from Study
  Country: FR (occurrence: FR)
  Receive Date: 20181002
  Receipt Date: 20181002
  Transmission Date: 20190204
  Serious: Yes (Hospitalization)
  Sender: FDA-Public Use
  Company Number: FR-SA-2018SA263404

PATIENT
  Age: 59 Year
  Sex: Female

DRUGS (2)
  1. CABAZITAXEL [Suspect]
     Active Substance: CABAZITAXEL
     Dosage: 180 MG, QCY
     Route: 042
     Dates: start: 20160518, end: 20160518
  2. CABAZITAXEL [Suspect]
     Active Substance: CABAZITAXEL
     Dosage: 180 MG, QCY
     Route: 042
     Dates: start: 20160316, end: 20160316

REACTIONS (1)
  - Diverticulitis [Recovered/Resolved with Sequelae]

NARRATIVE: CASE EVENT DATE: 20180102
